FAERS Safety Report 4913377-5 (Version None)
Quarter: 2006Q1

REPORT INFORMATION
  Report Type: 
  Country: None (occurrence: None)
  Receive Date: 20060210
  Receipt Date: 20060130
  Transmission Date: 20060701
  Serious: Yes (Hospitalization)
  Sender: FDA-Public Use
  Company Number: HQWYE587531JAN06

PATIENT
  Age: 52 Year
  Sex: Male

DRUGS (7)
  1. RAPAMUNE [Suspect]
     Indication: PROPHYLAXIS AGAINST TRANSPLANT REJECTION
     Dosage: ORAL
     Route: 048
     Dates: start: 20051126
  2. OMEPRAZOLE [Concomitant]
  3. ASPIRIN [Concomitant]
  4. VITAMIN B COMPLEX (CALCIUM PANTOTHENATE/NICOTINAMIDE/PYRIDOXINE HYDROC [Concomitant]
  5. VIAGRA [Concomitant]
  6. DICLOFENAC SODIUM (DICLOFENAC SODIUM) CREAM [Concomitant]
  7. MYCOPHENOLATE MOFETIL (MYCOPHENOLATE MOFETIL) [Concomitant]

REACTIONS (2)
  - DRUG INEFFECTIVE [None]
  - LIVER TRANSPLANT REJECTION [None]
